FAERS Safety Report 9458630 (Version 2)
Quarter: 2013Q3

REPORT INFORMATION
  Report Type: Report from Study
  Country: US (occurrence: US)
  Receive Date: 20130814
  Receipt Date: 20130830
  Transmission Date: 20140515
  Serious: Yes (Hospitalization)
  Sender: FDA-Public Use
  Company Number: PHEH2013US017144

PATIENT
  Age: 58 Year
  Sex: Female
  Weight: 69.84 kg

DRUGS (12)
  1. GILENYA [Suspect]
     Indication: MULTIPLE SCLEROSIS
     Dosage: 0.5 MG, QD
     Route: 048
     Dates: start: 20130808, end: 20130808
  2. XANAX [Concomitant]
     Indication: ANXIETY
     Dosage: 0.5 MG, PRN
     Route: 048
  3. PRISTIQ [Concomitant]
     Indication: ANXIETY
     Dosage: 100 MG, QD
     Dates: start: 20120709
  4. PRISTIQ [Concomitant]
     Dosage: 200 MG, BID
  5. PROVIGIL//CHORIONIC GONADOTROPHIN [Concomitant]
     Indication: FATIGUE
     Dosage: 200 MG, UNK
     Route: 048
     Dates: start: 20110104
  6. AMANTADINE [Concomitant]
     Indication: FATIGUE
     Dosage: 100 MG, BID
     Route: 048
  7. CRESTOR [Concomitant]
     Indication: BLOOD CHOLESTEROL INCREASED
     Dosage: 5 MG, QD
     Route: 048
  8. LISINOPRIL [Concomitant]
     Dosage: 5 MG, QD
  9. ALPRAZOLAM [Concomitant]
     Dosage: 0.5 MG, QID
  10. NEXUM [Concomitant]
     Dosage: 40 MG, QD
  11. GLATIRAMER [Concomitant]
     Dosage: 20 MG, QD
  12. MODAFINIL [Concomitant]
     Dosage: 200 MG, QD

REACTIONS (13)
  - Electrocardiogram abnormal [Recovered/Resolved]
  - Ventricular extrasystoles [Recovered/Resolved]
  - Sinus bradycardia [Recovered/Resolved]
  - Red cell distribution width increased [Unknown]
  - Monocyte percentage increased [Unknown]
  - Eosinophil percentage increased [Unknown]
  - Mean cell haemoglobin concentration decreased [Unknown]
  - Basophil percentage increased [Unknown]
  - Red blood cell count decreased [Unknown]
  - Haematocrit decreased [Unknown]
  - Blood pressure decreased [Unknown]
  - Lymphocyte count decreased [Unknown]
  - Leukopenia [Unknown]
